FAERS Safety Report 4494827-8 (Version None)
Quarter: 2004Q4

REPORT INFORMATION
  Report Type: 
  Country: None (occurrence: None)
  Receive Date: 20041103
  Receipt Date: 20041018
  Transmission Date: 20050328
  Serious: Yes (Death)
  Sender: FDA-Public Use
  Company Number: 2004-BP-10336RO

PATIENT
  Age: 48 Year
  Sex: 0

DRUGS (2)
  1. MIRTAZAPINE TABLETS, 15 MG (MIRTAZAPINE) [Suspect]
  2. AMITRIPTYLINE HCL [Suspect]

REACTIONS (3)
  - CARDIO-RESPIRATORY ARREST [None]
  - COMPLETED SUICIDE [None]
  - MULTIPLE DRUG OVERDOSE [None]
